FAERS Safety Report 12036962 (Version 2)
Quarter: 2016Q1

REPORT INFORMATION
  Report Type: Spontaneous
  Country: US (occurrence: US)
  Receive Date: 20160208
  Receipt Date: 20160217
  Transmission Date: 20160526
  Serious: No
  Sender: FDA-Public Use
  Company Number: US-APOTEX-2015AP007123

PATIENT
  Age: 21 Year
  Sex: Female

DRUGS (9)
  1. PAXIL [Suspect]
     Active Substance: PAROXETINE HYDROCHLORIDE
     Indication: ANXIETY
  2. PAXIL [Suspect]
     Active Substance: PAROXETINE HYDROCHLORIDE
     Indication: DEPRESSION
     Dosage: 40 MG, QD
     Route: 065
     Dates: start: 2002, end: 200409
  3. ADVIL [Concomitant]
     Active Substance: IBUPROFEN
     Indication: PRODUCT USED FOR UNKNOWN INDICATION
     Route: 065
  4. VICKS NYQUIL [Concomitant]
     Active Substance: ACETAMINOPHEN\DEXTROMETHORPHAN HYDROBROMIDE\DOXYLAMINE SUCCINATE
     Indication: PRODUCT USED FOR UNKNOWN INDICATION
     Route: 065
  5. MOTRIN [Concomitant]
     Active Substance: IBUPROFEN
     Indication: PRODUCT USED FOR UNKNOWN INDICATION
     Route: 065
  6. IRON [Concomitant]
     Active Substance: IRON
     Indication: PRODUCT USED FOR UNKNOWN INDICATION
     Route: 065
  7. DIPHENHYDRAMINE. [Concomitant]
     Active Substance: DIPHENHYDRAMINE
     Indication: PRODUCT USED FOR UNKNOWN INDICATION
  8. MULTIVITAMINS [Concomitant]
     Active Substance: VITAMINS
     Indication: PRODUCT USED FOR UNKNOWN INDICATION
     Route: 065
  9. PAXIL [Suspect]
     Active Substance: PAROXETINE HYDROCHLORIDE
     Indication: PANIC ATTACK
     Dosage: 40 MG, UNK
     Route: 065
     Dates: start: 20040909

REACTIONS (3)
  - Rebound effect [Unknown]
  - Exposure during pregnancy [Unknown]
  - Abdominal pain [Unknown]

NARRATIVE: CASE EVENT DATE: 20040909
